FAERS Safety Report 11294483 (Version 1)
Quarter: 2015Q3

REPORT INFORMATION
  Report Type: Spontaneous
  Country: US (occurrence: US)
  Receive Date: 20150722
  Receipt Date: 20150722
  Transmission Date: 20151125
  Serious: No
  Sender: FDA-Public Use
  Company Number: US-ELI_LILLY_AND_COMPANY-US200808002915

PATIENT
  Age: 59 Year
  Sex: Female

DRUGS (1)
  1. EVISTA [Suspect]
     Active Substance: RALOXIFENE HYDROCHLORIDE
     Indication: BONE DISORDER
     Dosage: 60 MG, DAILY (1/D)
     Dates: start: 2005

REACTIONS (3)
  - Varicose vein [Not Recovered/Not Resolved]
  - Arthritis [Not Recovered/Not Resolved]
  - Swelling [Not Recovered/Not Resolved]
